FAERS Safety Report 20958909 (Version 1)
Quarter: 2022Q2

REPORT INFORMATION
  Report Type: Spontaneous
  Country: DE (occurrence: DE)
  Receive Date: 20220614
  Receipt Date: 20220614
  Transmission Date: 20220721
  Serious: Yes (Other)
  Sender: FDA-Public Use
  Company Number: DE-TASMAN PHARMA, INC.-2022TSM00085

PATIENT
  Age: 63 Year
  Sex: Male

DRUGS (10)
  1. CLOZAPINE [Suspect]
     Active Substance: CLOZAPINE
     Indication: Schizophrenia
     Dosage: 100-650 MG, 1X/DAY
     Route: 065
     Dates: start: 2013
  2. CLOZAPINE [Suspect]
     Active Substance: CLOZAPINE
     Dosage: 850 MG, 1X/DAY
     Route: 065
  3. CARIPRAZINE [Suspect]
     Active Substance: CARIPRAZINE
     Indication: Schizophrenia
     Dosage: 1 MG, 1X/DAY
     Route: 065
  4. CARIPRAZINE [Suspect]
     Active Substance: CARIPRAZINE
     Dosage: 3 MG, 1X/DAY
  5. CARIPRAZINE [Suspect]
     Active Substance: CARIPRAZINE
     Dosage: 1.5 MG, 1X/DAY
     Route: 065
  6. VALPROATE [Concomitant]
     Active Substance: VALPROIC ACID
     Dosage: 2000 MG, 1X/DAY
     Route: 065
  7. VALPROATE [Concomitant]
     Active Substance: VALPROIC ACID
     Dosage: 2300 MG, 1X/DAY
     Route: 065
  8. AMISULPRIDE [Concomitant]
     Active Substance: AMISULPRIDE
     Dosage: 200 MG, 1X/DAY
     Route: 065
  9. PIPAMPERONE [Concomitant]
     Active Substance: PIPAMPERONE
     Dosage: 140 MG, 1X/DAY
     Route: 065
  10. PIRENZEPINE [Concomitant]
     Active Substance: PIRENZEPINE
     Dosage: 100 MG, 1X/DAY
     Route: 065

REACTIONS (3)
  - Schizophrenia [Recovered/Resolved]
  - Pleurothotonus [Recovered/Resolved]
  - Drug interaction [Recovered/Resolved]
